FAERS Safety Report 13437365 (Version 2)
Quarter: 2017Q2

REPORT INFORMATION
  Report Type: Spontaneous
  Country: IT (occurrence: IT)
  Receive Date: 20170413
  Receipt Date: 20170421
  Transmission Date: 20170830
  Serious: Yes (Other)
  Sender: FDA-Public Use
  Company Number: PHHY2017IT055693

PATIENT
  Age: 54 Year
  Sex: Female

DRUGS (3)
  1. ZOLEDRONIC ACID [Suspect]
     Active Substance: ZOLEDRONIC ACID
     Indication: METASTASES TO BONE
     Dosage: UNK
     Route: 041
     Dates: start: 201406
  2. EVEROLIMUS [Suspect]
     Active Substance: EVEROLIMUS
     Indication: BREAST CANCER
     Dosage: 10 MG, QD
     Route: 065
     Dates: start: 201212
  3. EXEMESTANE. [Suspect]
     Active Substance: EXEMESTANE
     Indication: BREAST CANCER
     Dosage: UNK
     Route: 065
     Dates: start: 201212

REACTIONS (8)
  - Osteonecrosis of jaw [Not Recovered/Not Resolved]
  - Mastication disorder [Unknown]
  - Malignant neoplasm progression [Unknown]
  - Exposed bone in jaw [Recovering/Resolving]
  - Pain in jaw [Unknown]
  - Metastases to bone [Unknown]
  - Oral cavity fistula [Unknown]
  - Gingival swelling [Unknown]

NARRATIVE: CASE EVENT DATE: 201405
